FAERS Safety Report 9326042 (Version 1)
Quarter: 2013Q2

REPORT INFORMATION
  Report Type: Report from Study
  Country: DE (occurrence: DE)
  Receive Date: 20130604
  Receipt Date: 20130604
  Transmission Date: 20140414
  Serious: Yes (Hospitalization)
  Sender: FDA-Public Use
  Company Number: DE-UCBSA-058589

PATIENT
  Sex: Male
  Weight: 78 kg

DRUGS (19)
  1. CERTOLIZUMAB PEGOL [Suspect]
     Indication: RHEUMATOID ARTHRITIS
     Route: 058
     Dates: start: 20120319
  2. CERTOLIZUMAB PEGOL [Suspect]
     Indication: RHEUMATOID ARTHRITIS
     Route: 058
     Dates: start: 20110211, end: 20120203
  3. KEPPRA [Concomitant]
     Indication: EPILEPSY
     Dosage: EVERY MORNING
  4. SIMVASTATIN [Concomitant]
     Indication: HYPERLIPIDAEMIA
     Dosage: EVERY NIGHT
  5. METOPROLOL [Concomitant]
     Indication: CORONARY ARTERY DISEASE
  6. PREDNISOLONE [Concomitant]
     Indication: RHEUMATOID ARTHRITIS
  7. ASS 100 [Concomitant]
     Indication: THROMBOSIS PROPHYLAXIS
     Dosage: EVERY MORNING
     Dates: start: 2009
  8. COMBINATION INSULIN [Concomitant]
     Indication: DIABETES MELLITUS
     Dosage: 30/70 IU BID
     Route: 058
  9. TOREM [Concomitant]
     Indication: HYPERTENSION
     Dosage: EVERY MORNING
  10. TOREM [Concomitant]
     Indication: CARDIAC FAILURE
     Dosage: EVERY MORNING
  11. EZETOL [Concomitant]
     Indication: HYPERCHOLESTEROLAEMIA
     Dosage: EVERY MORNING
  12. ALLOPURINOL [Concomitant]
     Indication: HYPERURICAEMIA
  13. VOCADO [Concomitant]
     Indication: HYPERTENSION
     Dosage: 40/10 MG: EVERY MORNING
  14. METAMIZOLE [Concomitant]
     Indication: PAIN
  15. OLMESARTAN [Concomitant]
     Indication: HYPERTENSION
  16. PANTOZOL [Concomitant]
     Indication: PROPHYLAXIS AGAINST GASTROINTESTINAL ULCER
     Dosage: EVERY MORNING
  17. AMLODIPIN [Concomitant]
     Indication: HYPERTENSION
     Dosage: EVERY MORNING
  18. DECORTIN [Concomitant]
     Indication: ARTHRITIS
     Dosage: EVERY MORNING
  19. VOCADO [Concomitant]
     Indication: HYPERTENSION
     Dosage: 40/10 MG: EVERY MORNING

REACTIONS (1)
  - Gastroenteritis norovirus [Recovered/Resolved]
